FAERS Safety Report 5758118-7 (Version None)
Quarter: 2008Q2

REPORT INFORMATION
  Report Type: 
  Country: None (occurrence: None)
  Receive Date: 20080603
  Receipt Date: 20080603
  Transmission Date: 20081010
  Serious: Yes (Life-Threatening, Hospitalization, Disabling, Other)
  Sender: FDA-Public Use
  Company Number: None

PATIENT
  Age: 93 Year
  Sex: Female
  Weight: 56.6996 kg

DRUGS (1)
  1. DIGOXIN [Suspect]
     Indication: ATRIAL FIBRILLATION
     Dosage: .25 MG DAILY PO
     Route: 048
     Dates: start: 20001024, end: 20080215

REACTIONS (2)
  - LIVING IN RESIDENTIAL INSTITUTION [None]
  - THERAPEUTIC AGENT TOXICITY [None]
